FAERS Safety Report 15547375 (Version 1)
Quarter: 2018Q4

REPORT INFORMATION
  Report Type: Spontaneous
  Country: ES (occurrence: ES)
  Receive Date: 20181024
  Receipt Date: 20181024
  Transmission Date: 20190205
  Serious: Yes (Other)
  Sender: FDA-Public Use
  Company Number: ES-MYLANLABS-2018M1077327

PATIENT
  Age: 40 Year
  Sex: Female

DRUGS (11)
  1. TOCILIZUMAB. [Suspect]
     Active Substance: TOCILIZUMAB
     Route: 058
     Dates: start: 20161125
  2. TOCILIZUMAB. [Suspect]
     Active Substance: TOCILIZUMAB
     Indication: DERMATITIS ATOPIC
     Route: 042
     Dates: start: 201608, end: 20161027
  3. PREDNISONE. [Concomitant]
     Active Substance: PREDNISONE
     Indication: DERMATITIS ATOPIC
     Route: 065
  4. DEFLAZACORT [Suspect]
     Active Substance: DEFLAZACORT
     Indication: DERMATITIS ATOPIC
     Route: 065
  5. MYCOPHENOLATE MOFETIL. [Suspect]
     Active Substance: MYCOPHENOLATE MOFETIL
     Indication: DERMATITIS ATOPIC
     Route: 065
  6. CEFTAZIDIME. [Concomitant]
     Active Substance: CEFTAZIDIME
     Indication: KERATITIS
     Route: 047
  7. CICLOSPORIN [Suspect]
     Active Substance: CYCLOSPORINE
     Indication: DERMATITIS ATOPIC
     Dosage: 150 MG, UNK
     Route: 065
  8. VANCOMYCIN [Concomitant]
     Active Substance: VANCOMYCIN
     Indication: KERATITIS
     Route: 047
  9. METHOTREXATE. [Suspect]
     Active Substance: METHOTREXATE
     Indication: DERMATITIS ATOPIC
     Route: 065
  10. PREDNISONE. [Concomitant]
     Active Substance: PREDNISONE
     Route: 065
  11. USTEKINUMAB [Suspect]
     Active Substance: USTEKINUMAB
     Indication: DERMATITIS ATOPIC
     Route: 065

REACTIONS (1)
  - Drug ineffective [Unknown]
